FAERS Safety Report 11119709 (Version 1)
Quarter: 2015Q2

REPORT INFORMATION
  Report Type: Spontaneous
  Country: CA (occurrence: CA)
  Receive Date: 20150518
  Receipt Date: 20150518
  Transmission Date: 20150821
  Serious: Yes (Hospitalization, Other)
  Sender: FDA-Public Use
  Company Number: CA-TEVA-563016ACC

PATIENT
  Age: 67 Year
  Sex: Female

DRUGS (1)
  1. PAROXETINE [Suspect]
     Active Substance: PAROXETINE\PAROXETINE HYDROCHLORIDE
     Indication: DEPRESSION
     Dosage: UNKNOWN FORM STRENGTH
     Route: 065

REACTIONS (2)
  - Product substitution issue [Recovered/Resolved]
  - Condition aggravated [Recovered/Resolved]
